FAERS Safety Report 4286662-0 (Version None)
Quarter: 2004Q1

REPORT INFORMATION
  Report Type: 
  Country: None (occurrence: None)
  Receive Date: 20040204
  Receipt Date: 20040127
  Transmission Date: 20041129
  Serious: Yes (Hospitalization)
  Sender: FDA-Public Use
  Company Number: HQWYE576027JAN04

PATIENT
  Age: 63 Year
  Sex: Male

DRUGS (1)
  1. CORDARONE [Suspect]
     Indication: ATRIAL FIBRILLATION
     Dosage: 200 MG 1X PER 1 DAY, ORAL
     Route: 048
     Dates: start: 20011201, end: 20030923

REACTIONS (7)
  - DIABETES MELLITUS [None]
  - HYPOXIA [None]
  - NEUTROPHILIA [None]
  - PNEUMONITIS [None]
  - PULMONARY HAEMORRHAGE [None]
  - PYREXIA [None]
  - SYSTEMIC INFLAMMATORY RESPONSE SYNDROME [None]
